FAERS Safety Report 20891141 (Version 1)
Quarter: 2022Q2

REPORT INFORMATION
  Report Type: Spontaneous
  Country: US (occurrence: US)
  Receive Date: 20220530
  Receipt Date: 20220530
  Transmission Date: 20220721
  Serious: Yes (Other)
  Sender: FDA-Public Use
  Company Number: US-AMGEN-USASP2022086920

PATIENT
  Age: 79 Year
  Sex: Female

DRUGS (4)
  1. RITUXIMAB [Suspect]
     Active Substance: RITUXIMAB
     Indication: Mantle cell lymphoma
     Dosage: UNK
     Route: 065
  2. BENDAMUSTINE;RITUXIMAB [Concomitant]
     Indication: Mantle cell lymphoma
     Dosage: UNK
     Route: 065
  3. IBRUTINIB;RITUXIMAB [Concomitant]
     Indication: Mantle cell lymphoma
     Route: 065
  4. ALLOPURINOL [Concomitant]
     Active Substance: ALLOPURINOL
     Indication: Mantle cell lymphoma
     Route: 065

REACTIONS (1)
  - Mantle cell lymphoma recurrent [Unknown]
